FAERS Safety Report 19322196 (Version 1)
Quarter: 2021Q2

REPORT INFORMATION
  Report Type: Spontaneous
  Country: US (occurrence: US)
  Receive Date: 20210528
  Receipt Date: 20210528
  Transmission Date: 20210717
  Serious: No
  Sender: FDA-Public Use
  Company Number: US-BEH-2021132059

PATIENT
  Age: 44 Year
  Sex: Female

DRUGS (16)
  1. HIZENTRA [Suspect]
     Active Substance: HUMAN IMMUNOGLOBULIN G
     Indication: IMMUNODEFICIENCY COMMON VARIABLE
     Dosage: 13 GRAM, QW
     Route: 058
     Dates: start: 20210115
  2. OMEPRAZOLE. [Concomitant]
     Active Substance: OMEPRAZOLE
  3. EPINEPHRINE. [Concomitant]
     Active Substance: EPINEPHRINE
  4. GAMUNEX?C [Concomitant]
     Active Substance: HUMAN IMMUNOGLOBULIN G
  5. PEPCID AC [Concomitant]
     Active Substance: FAMOTIDINE
  6. ALLEGRA ALLERGY [Concomitant]
     Active Substance: FEXOFENADINE HYDROCHLORIDE
  7. BENZONATATE. [Concomitant]
     Active Substance: BENZONATATE
  8. KEPPRA [Concomitant]
     Active Substance: LEVETIRACETAM
  9. BIOTIN [Concomitant]
     Active Substance: BIOTIN
  10. TESSALON [Concomitant]
     Active Substance: BENZONATATE
  11. TYLENOL [Concomitant]
     Active Substance: ACETAMINOPHEN
  12. PREDNISONE. [Concomitant]
     Active Substance: PREDNISONE
  13. ACETAMINOPHEN. [Concomitant]
     Active Substance: ACETAMINOPHEN
  14. DIPHENHYDRAMINE. [Concomitant]
     Active Substance: DIPHENHYDRAMINE
  15. FOLIC ACID. [Concomitant]
     Active Substance: FOLIC ACID
  16. PLAQUENIL [Concomitant]
     Active Substance: HYDROXYCHLOROQUINE SULFATE

REACTIONS (2)
  - Nausea [Not Recovered/Not Resolved]
  - Hiccups [Not Recovered/Not Resolved]

NARRATIVE: CASE EVENT DATE: 20210513
